FAERS Safety Report 14720449 (Version 1)
Quarter: 2018Q2

REPORT INFORMATION
  Report Type: Other
  Country: DE (occurrence: DE)
  Receive Date: 20180405
  Receipt Date: 20180405
  Transmission Date: 20180711
  Serious: Yes (Life-Threatening, Hospitalization, Other)
  Sender: FDA-Public Use
  Company Number: DE-GLENMARK PHARMACEUTICALS-2018GMK033895

PATIENT

DRUGS (12)
  1. CYMBALTA [Suspect]
     Active Substance: DULOXETINE HYDROCHLORIDE
     Indication: PRODUCT USED FOR UNKNOWN INDICATION
     Dosage: UNK
     Route: 065
  2. TAXILAN (PERAZINE) [Suspect]
     Active Substance: PERAZINE
     Indication: PRODUCT USED FOR UNKNOWN INDICATION
     Dosage: UNK
     Route: 065
  3. TRUXAL [Suspect]
     Active Substance: CHLORPROTHIXENE
     Indication: PRODUCT USED FOR UNKNOWN INDICATION
     Dosage: UNK
     Route: 065
  4. FLUANXOL [Suspect]
     Active Substance: FLUPENTIXOL
     Indication: PRODUCT USED FOR UNKNOWN INDICATION
     Dosage: UNK
     Route: 065
  5. SEROQUEL [Suspect]
     Active Substance: QUETIAPINE FUMARATE
     Indication: PRODUCT USED FOR UNKNOWN INDICATION
     Dosage: UNK
     Route: 065
  6. LAMOTRIGINE. [Suspect]
     Active Substance: LAMOTRIGINE
     Indication: PRODUCT USED FOR UNKNOWN INDICATION
     Dosage: UNK
     Route: 065
  7. MYDOCALM (TOLPERISONE HYDROCHLORIDE) [Suspect]
     Active Substance: TOLPERISONE HYDROCHLORIDE
     Indication: PRODUCT USED FOR UNKNOWN INDICATION
     Dosage: UNK
     Route: 065
  8. MIRTAZAPINE. [Suspect]
     Active Substance: MIRTAZAPINE
     Indication: PRODUCT USED FOR UNKNOWN INDICATION
     Dosage: UNK
     Route: 065
  9. TREVILOR RETARD [Suspect]
     Active Substance: VENLAFAXINE HYDROCHLORIDE
     Indication: PRODUCT USED FOR UNKNOWN INDICATION
     Dosage: UNK
     Route: 065
  10. ZOLOFT [Suspect]
     Active Substance: SERTRALINE HYDROCHLORIDE
     Indication: PRODUCT USED FOR UNKNOWN INDICATION
     Dosage: UNK
     Route: 065
  11. NEUROCIL (LEVOMEPROMAZINE) [Suspect]
     Active Substance: LEVOMEPROMAZINE
     Indication: PRODUCT USED FOR UNKNOWN INDICATION
     Dosage: UNK
     Route: 065
  12. RISPERDAL [Suspect]
     Active Substance: RISPERIDONE
     Indication: PRODUCT USED FOR UNKNOWN INDICATION
     Dosage: UNK
     Route: 065

REACTIONS (13)
  - Staring [Unknown]
  - Tooth loss [Unknown]
  - Coordination abnormal [Unknown]
  - Serotonin syndrome [Unknown]
  - Blood glucose increased [Unknown]
  - Hypothyroidism [Unknown]
  - Hallucination [Unknown]
  - Withdrawal syndrome [Unknown]
  - Wound [Unknown]
  - Blood pressure decreased [Unknown]
  - Electrocardiogram QT prolonged [Unknown]
  - Urinary tract infection [Unknown]
  - Dementia [Unknown]
